FAERS Safety Report 5191073-X (Version None)
Quarter: 2006Q4

REPORT INFORMATION
  Report Type: 
  Country: None (occurrence: None)
  Receive Date: 20061226
  Receipt Date: 20061215
  Transmission Date: 20070319
  Serious: Yes (Other)
  Sender: FDA-Public Use
  Company Number: 2006GB02341

PATIENT
  Age: 35 Year
  Sex: Male
  Weight: 106 kg

DRUGS (2)
  1. NEXIUM [Suspect]
     Indication: GASTROOESOPHAGEAL REFLUX DISEASE
     Route: 048
     Dates: start: 20051117
  2. NEXIUM [Suspect]
     Route: 048
     Dates: end: 20061124

REACTIONS (4)
  - GRIP STRENGTH DECREASED [None]
  - NEURALGIA [None]
  - PAIN IN EXTREMITY [None]
  - PARAESTHESIA [None]
